FAERS Safety Report 9508285 (Version 2)
Quarter: 2013Q3

REPORT INFORMATION
  Report Type: Spontaneous
  Country: US (occurrence: US)
  Receive Date: 20130909
  Receipt Date: 20130912
  Transmission Date: 20140515
  Serious: Yes (Other)
  Sender: FDA-Public Use
  Company Number: US-PFIZER INC-2013258595

PATIENT
  Age: 29 Year
  Sex: Female

DRUGS (3)
  1. EFFEXOR [Suspect]
     Indication: DEPRESSION
     Dosage: 37.5 MG, 1X/DAY
     Route: 048
     Dates: start: 2013
  2. EFFEXOR [Suspect]
     Dosage: 75 MG, UNK
  3. CLINDAMYCIN [Concomitant]
     Dosage: UNK

REACTIONS (1)
  - Abortion spontaneous [Unknown]
